FAERS Safety Report 12393169 (Version 1)
Quarter: 2016Q2

REPORT INFORMATION
  Report Type: Spontaneous
  Country: US (occurrence: None)
  Receive Date: 20160520
  Receipt Date: 20160520
  Transmission Date: 20160815
  Serious: Yes (Other)
  Sender: FDA-Public Use
  Company Number: None

PATIENT
  Age: 52 Year
  Sex: Female
  Weight: 65.77 kg

DRUGS (1)
  1. MINOCYCLINE 50 MG TABLETS, 50 MG PAR [Suspect]
     Active Substance: MINOCYCLINE\MINOCYCLINE HYDROCHLORIDE
     Indication: ACNE
     Route: 048
     Dates: start: 20160430, end: 20160506

REACTIONS (7)
  - Rash [None]
  - Pruritus [None]
  - Blister [None]
  - Burning sensation [None]
  - Product substitution issue [None]
  - Scratch [None]
  - Ocular hyperaemia [None]

NARRATIVE: CASE EVENT DATE: 20160430
